FAERS Safety Report 9563389 (Version 2)
Quarter: 2013Q3

REPORT INFORMATION
  Report Type: Report from Study
  Country: US (occurrence: US)
  Receive Date: 20130927
  Receipt Date: 20130927
  Transmission Date: 20140515
  Serious: Yes (Hospitalization)
  Sender: FDA-Public Use
  Company Number: US-TAKEDA-TPA2013A07553

PATIENT
  Age: 73 Year
  Sex: Male
  Weight: 112.6 kg

DRUGS (23)
  1. BLINDED ALLOPURINOL [Suspect]
     Indication: HYPERURICAEMIA
     Dosage: UNK, QD
     Route: 048
     Dates: start: 20110217
  2. BLINDED FEBUXOSTAT [Suspect]
     Indication: HYPERURICAEMIA
     Dosage: UNK, QD
     Route: 048
     Dates: start: 20110217
  3. GEMFIBROZIL [Concomitant]
     Indication: BLOOD TRIGLYCERIDES INCREASED
     Dosage: 750 MG, QD
     Route: 048
     Dates: start: 1988
  4. LOVASTATIN [Concomitant]
     Indication: HYPERCHOLESTEROLAEMIA
     Dosage: 40 MG, QD
     Route: 048
     Dates: start: 1988
  5. LISINOPRIL [Concomitant]
     Indication: HYPERTENSION
     Dosage: 40 MG, 1/2 QD
     Route: 048
     Dates: start: 1988
  6. HYDROCHLOROTHIAZIDE [Concomitant]
     Indication: HYPERTENSION
     Dosage: 25 MG, QD
     Route: 048
     Dates: start: 1988
  7. DESONIDE CREAM 0.05% [Concomitant]
     Indication: ROSACEA
     Dosage: UNK
     Route: 061
     Dates: start: 2009
  8. FLUOCINONIDE CREAM 0.05% [Concomitant]
     Indication: OSTEOARTHRITIS
     Dosage: 1 APPLICATION, BID
     Route: 061
     Dates: start: 2009
  9. CALCIUM [Concomitant]
     Indication: OSTEOPENIA
     Dosage: 200 MG, BID
     Route: 048
     Dates: start: 2010
  10. ASPIRIN [Concomitant]
     Indication: CARDIOVASCULAR EVENT PROPHYLAXIS
     Dosage: 325 MG, QD
     Route: 048
     Dates: start: 1988
  11. TESTOSTERONE ENANTATE [Concomitant]
     Indication: HORMONE REPLACEMENT THERAPY
     Dosage: 200 MG, Q2WEEKS
     Route: 058
     Dates: start: 2008
  12. MEDROL DOSE PACK                         /00049601/ [Concomitant]
     Indication: GOUT
     Dosage: 40 MG, QD
     Route: 048
     Dates: start: 20120224
  13. NAPROXEN [Concomitant]
     Indication: GOUT
     Dates: start: 20110329, end: 20110801
  14. LANSOPRAZOLE [Concomitant]
     Indication: PROPHYLAXIS AGAINST GASTROINTESTINAL ULCER
     Dosage: 15 MG, QD
     Dates: start: 20110329, end: 20110801
  15. LANSOPRAZOLE [Concomitant]
     Indication: OESOPHAGITIS
     Dosage: 15 MG, QD
     Route: 048
     Dates: start: 20130530
  16. VITAMIN D3 [Concomitant]
     Indication: MEDICAL DIET
     Dosage: 400 IU, QD
     Route: 048
     Dates: start: 2012
  17. MULTIVITAMIN                       /00831701/ [Concomitant]
     Indication: MEDICAL DIET
     Dosage: 1 DF, QD
     Route: 048
     Dates: start: 2012
  18. OMEGA-3-ACID ETHYL ESTER  90 [Concomitant]
     Indication: MEDICAL DIET
     Dosage: 1 DF, QD
     Route: 048
     Dates: start: 2012
  19. OMEPRAZOLE [Concomitant]
     Indication: GASTROOESOPHAGEAL REFLUX DISEASE
     Dosage: 20 MG, QD
     Route: 048
     Dates: start: 2012
  20. VIAGRA [Concomitant]
     Indication: ERECTILE DYSFUNCTION
     Dosage: 20 MG, 4 X MONTH
     Route: 048
     Dates: start: 2012
  21. HYDROCODONE W/ACETAMINOPHEN [Concomitant]
     Indication: PAIN
     Dosage: 5/325 MG, UNK
     Route: 048
     Dates: start: 20130530
  22. NITROGLYCERIN [Concomitant]
     Indication: CHEST PAIN
     Dosage: 0.4 MG, UNK
     Route: 048
     Dates: start: 20130530
  23. GENERAL ENDOTRACGEAL ANESTHESIA [Concomitant]
     Indication: SURGERY
     Dosage: UNK, QD
     Route: 050
     Dates: start: 20130530, end: 20130530

REACTIONS (2)
  - Coronary artery disease [Recovered/Resolved]
  - Angina pectoris [Recovered/Resolved]
